FAERS Safety Report 7893124-8 (Version None)
Quarter: 2011Q4

REPORT INFORMATION
  Report Type: 
  Country: None (occurrence: None)
  Receive Date: 20111104
  Receipt Date: 20111020
  Transmission Date: 20120403
  Serious: Yes (Other)
  Sender: FDA-Public Use
  Company Number: US-US-EMD SERONO, INC.-7090993

PATIENT
  Sex: Female
  Weight: 61 kg

DRUGS (6)
  1. REBIF [Suspect]
     Indication: MULTIPLE SCLEROSIS
     Route: 058
     Dates: start: 20110831
  2. VITAMIN D [Concomitant]
  3. IRON [Concomitant]
  4. REBIF [Suspect]
     Route: 058
  5. REBIF [Suspect]
     Route: 058
  6. ZOLOFT [Concomitant]

REACTIONS (2)
  - INJECTION SITE RASH [None]
  - DEAFNESS [None]
